FAERS Safety Report 4774974-3 (Version None)
Quarter: 2005Q3

REPORT INFORMATION
  Report Type: 
  Country: None (occurrence: None)
  Receive Date: 20050921
  Receipt Date: 20050907
  Transmission Date: 20060218
  Serious: Yes (Hospitalization, Other)
  Sender: FDA-Public Use
  Company Number: US-JNJFOC-20040607343

PATIENT
  Sex: Female
  Weight: 88.45 kg

DRUGS (3)
  1. TYLENOL [Suspect]
     Route: 048
  2. TYLENOL [Suspect]
     Dosage: 650-1300 MG TID PRN
     Route: 048
  3. ALTACE [Concomitant]
     Route: 065

REACTIONS (2)
  - DERMATITIS ALLERGIC [None]
  - DRUG HYPERSENSITIVITY [None]
